FAERS Safety Report 7596240-3 (Version None)
Quarter: 2011Q3

REPORT INFORMATION
  Report Type: 
  Country: None (occurrence: None)
  Receive Date: 20110707
  Receipt Date: 20110629
  Transmission Date: 20111222
  Serious: Yes (Other)
  Sender: FDA-Public Use
  Company Number: US-PFIZER INC-2010154634

PATIENT
  Sex: Female

DRUGS (2)
  1. XANAX [Suspect]
     Dosage: 1 MG, UNK
  2. XANAX [Suspect]
     Dosage: UNK

REACTIONS (11)
  - DYSARTHRIA [None]
  - ABDOMINAL PAIN UPPER [None]
  - IRRITABLE BOWEL SYNDROME [None]
  - NERVE INJURY [None]
  - ANGER [None]
  - WITHDRAWAL SYNDROME [None]
  - SUICIDAL IDEATION [None]
  - INSOMNIA [None]
  - PAIN [None]
  - CRYING [None]
  - TOE OPERATION [None]
